FAERS Safety Report 5598624-1 (Version None)
Quarter: 2007Q4

REPORT INFORMATION
  Report Type: 
  Country: None (occurrence: None)
  Receive Date: 20071226
  Receipt Date: 20071005
  Transmission Date: 20080405
  Serious: No
  Sender: FDA-Public Use
  Company Number: 2007PV033546

PATIENT
  Age: 60 Year
  Sex: Female

DRUGS (4)
  1. SYMLIN [Suspect]
     Indication: TYPE 1 DIABETES MELLITUS
     Dosage: SC
     Route: 058
     Dates: start: 20070301, end: 20070101
  2. SYMLIN [Suspect]
     Indication: TYPE 1 DIABETES MELLITUS
     Dosage: SC
     Route: 058
     Dates: start: 20070601, end: 20070101
  3. HUMALOG [Concomitant]
  4. LANTUS [Concomitant]

REACTIONS (3)
  - ALOPECIA [None]
  - BLOOD GLUCOSE DECREASED [None]
  - DIZZINESS [None]
